FAERS Safety Report 8083159-7 (Version None)
Quarter: 2012Q1

REPORT INFORMATION
  Report Type: 
  Country: None (occurrence: None)
  Receive Date: 20120127
  Receipt Date: 20110214
  Transmission Date: 20120608
  Serious: No
  Sender: FDA-Public Use
  Company Number: US-ABBOTT-11P-163-0705262-00

PATIENT
  Age: 70 Year
  Sex: Female

DRUGS (6)
  1. VITAMIN B-12 [Concomitant]
     Indication: PRODUCT USED FOR UNKNOWN INDICATION
     Dosage: ONE PILL DAILY
  2. PENICILLIN [Concomitant]
  3. HUMIRA [Suspect]
     Indication: CROHN'S DISEASE
     Dates: start: 20100901, end: 20101001
  4. HUMIRA [Suspect]
     Dates: start: 20101120
  5. PREDNISONE TAB [Concomitant]
     Indication: PRODUCT USED FOR UNKNOWN INDICATION
     Dosage: 5 MG.DAILY
  6. PENTASA [Concomitant]
     Indication: PRODUCT USED FOR UNKNOWN INDICATION
     Dosage: 2 PILLS DAILY

REACTIONS (2)
  - MEMORY IMPAIRMENT [None]
  - FATIGUE [None]
